FAERS Safety Report 9015145 (Version 2)
Quarter: 2013Q1

REPORT INFORMATION
  Report Type: Spontaneous
  Country: US (occurrence: US)
  Receive Date: 20130116
  Receipt Date: 20130228
  Transmission Date: 20140127
  Serious: No
  Sender: FDA-Public Use
  Company Number: US-B.I. PHARMACEUTICALS,INC./RIDGEFIELD-2013-BI-00520BP

PATIENT
  Age: 55 None
  Sex: Male
  Weight: 88 kg

DRUGS (16)
  1. PRADAXA [Suspect]
     Indication: CEREBROVASCULAR ACCIDENT PROPHYLAXIS
     Dosage: 150 MG
     Route: 048
     Dates: start: 2012
  2. PRADAXA [Suspect]
     Indication: ATRIAL FIBRILLATION
     Dosage: 75 MG
     Route: 048
     Dates: start: 201301, end: 20130221
  3. AVODART [Concomitant]
     Indication: PROSTATOMEGALY
     Route: 048
  4. ALLOPURINOL [Concomitant]
     Indication: GOUT
     Route: 048
  5. FISH OIL [Concomitant]
     Route: 048
  6. MULTIVITAMIN [Concomitant]
     Route: 048
  7. FOSAMAX [Concomitant]
     Route: 048
  8. TOPROL [Concomitant]
     Dosage: 100 MG
     Route: 048
  9. PRAVACHOL [Concomitant]
     Route: 048
  10. VITAMIN D [Concomitant]
     Route: 048
  11. LEXAPRO [Concomitant]
     Dosage: 5 MG
     Route: 048
  12. FUROSEMIDE [Concomitant]
     Route: 048
  13. ALDACTONE [Concomitant]
     Route: 048
  14. LANOXIN [Concomitant]
     Route: 048
  15. WELLBUTRIN [Concomitant]
     Route: 048
  16. NEXIUM [Concomitant]
     Route: 048

REACTIONS (5)
  - Asthenia [Not Recovered/Not Resolved]
  - Drug administration error [Recovered/Resolved]
  - Drug dispensing error [Recovered/Resolved]
  - Gait disturbance [Recovered/Resolved]
  - Fall [Recovered/Resolved]
